FAERS Safety Report 10723330 (Version 1)
Quarter: 2015Q1

REPORT INFORMATION
  Report Type: Spontaneous
  Country: CH (occurrence: CH)
  Receive Date: 20150120
  Receipt Date: 20150120
  Transmission Date: 20150721
  Serious: Yes (Hospitalization)
  Sender: FDA-Public Use
  Company Number: CH-TEVA-533188ISR

PATIENT
  Age: 69 Year
  Sex: Male

DRUGS (2)
  1. PANTOZOL [Concomitant]
     Active Substance: PANTOPRAZOLE SODIUM
     Dosage: DOSAGE UNKNOWN
     Route: 048
     Dates: start: 20141009, end: 20141016
  2. IBUPROFEN. [Suspect]
     Active Substance: IBUPROFEN
     Indication: PAIN
     Dosage: 1200 MILLIGRAM DAILY;
     Route: 048
     Dates: start: 20141009, end: 20141016

REACTIONS (8)
  - Large intestine polyp [Unknown]
  - Presyncope [Recovered/Resolved]
  - Gastrooesophageal reflux disease [Unknown]
  - Haemorrhagic anaemia [Recovering/Resolving]
  - Diverticulum intestinal [Unknown]
  - Melaena [Recovered/Resolved]
  - Diverticulitis intestinal haemorrhagic [Recovering/Resolving]
  - Inflammation [Unknown]

NARRATIVE: CASE EVENT DATE: 201410
